FAERS Safety Report 6384420-4 (Version None)
Quarter: 2009Q4

REPORT INFORMATION
  Report Type: 
  Country: None (occurrence: None)
  Receive Date: 20091001
  Receipt Date: 20090916
  Transmission Date: 20100525
  Serious: Yes (Hospitalization)
  Sender: FDA-Public Use
  Company Number: US-PFIZER INC-2009269295

PATIENT
  Sex: Female
  Weight: 68.2 kg

DRUGS (11)
  1. SUTENT [Suspect]
     Indication: BREAST CANCER
     Dosage: 25 MG, 1X/DAY
     Route: 048
     Dates: start: 20090429, end: 20090820
  2. TAXOL [Suspect]
     Indication: BREAST CANCER
     Dosage: 80 MG/M2, 3XM
     Route: 042
     Dates: start: 20090512, end: 20090818
  3. LEVOTHYROXINE [Concomitant]
  4. SIMVASTATIN [Concomitant]
  5. HYZAAR [Concomitant]
  6. PROPRANOLOL [Concomitant]
  7. AUGMENTIN [Concomitant]
     Dosage: 840 MG, 2X/DAY
     Route: 048
  8. CIPROFLOXACIN [Concomitant]
     Dosage: 500 MG, 2X/DAY
     Route: 048
  9. FLUCONAZOLE [Concomitant]
     Dosage: 400 MG, 1X/DAY
     Route: 048
  10. OXYCODONE [Concomitant]
     Dosage: UNK
  11. COMPAZINE [Concomitant]
     Dosage: UNK

REACTIONS (2)
  - CARDIAC FAILURE CONGESTIVE [None]
  - PULMONARY OEDEMA [None]
